FAERS Safety Report 5060882-X (Version None)
Quarter: 2006Q3

REPORT INFORMATION
  Report Type: 
  Country: None (occurrence: None)
  Receive Date: 20060719
  Receipt Date: 20060719
  Transmission Date: 20061208
  Serious: Yes (Life-Threatening, Hospitalization, Disabling)
  Sender: FDA-Public Use
  Company Number: None

PATIENT
  Sex: Female
  Weight: 63.9572 kg

DRUGS (1)
  1. AMARYL [Suspect]
     Indication: DIABETES MELLITUS
     Dosage: 4 MG ONCE A DAY

REACTIONS (4)
  - ABASIA [None]
  - ASTHENIA [None]
  - PAIN [None]
  - WEIGHT DECREASED [None]
